FAERS Safety Report 23381916 (Version 2)
Quarter: 2024Q2

REPORT INFORMATION
  Report Type: Spontaneous
  Country: JP (occurrence: JP)
  Receive Date: 20240109
  Receipt Date: 20240606
  Transmission Date: 20240715
  Serious: Yes (Death, Hospitalization, Other)
  Sender: FDA-Public Use
  Company Number: JP-SUN PHARMACEUTICAL INDUSTRIES LTD-2023R1-426620

PATIENT
  Age: 22 Year
  Sex: Male

DRUGS (1)
  1. CAFFEINE [Suspect]
     Active Substance: CAFFEINE
     Indication: Product used for unknown indication
     Dosage: 200 MILLIGRAM
     Route: 048

REACTIONS (6)
  - Acute kidney injury [Fatal]
  - Intentional overdose [Fatal]
  - Rhabdomyolysis [Fatal]
  - Suicide attempt [Fatal]
  - Toxicity to various agents [Fatal]
  - Ventricular fibrillation [Fatal]
